FAERS Safety Report 6383602-5 (Version None)
Quarter: 2009Q3

REPORT INFORMATION
  Report Type: 
  Country: None (occurrence: None)
  Receive Date: 20090929
  Receipt Date: 20090929
  Transmission Date: 20100115
  Serious: Yes (Hospitalization)
  Sender: FDA-Public Use
  Company Number: None

PATIENT
  Age: 46 Year
  Sex: Male
  Weight: 86.6 kg

DRUGS (2)
  1. ASPIRIN [Suspect]
     Indication: PAIN
     Dates: end: 20090922
  2. IBUPROFEN [Suspect]
     Indication: PAIN
     Dates: end: 20090922

REACTIONS (2)
  - GASTRIC HAEMORRHAGE [None]
  - PEPTIC ULCER [None]
